FAERS Safety Report 5130858-2 (Version None)
Quarter: 2006Q4

REPORT INFORMATION
  Report Type: 
  Country: None (occurrence: None)
  Receive Date: 20061019
  Receipt Date: 20061010
  Transmission Date: 20070319
  Serious: Yes (Hospitalization)
  Sender: FDA-Public Use
  Company Number: NL-SANOFI-SYNTHELABO-A01200608455

PATIENT
  Sex: Female
  Weight: 59 kg

DRUGS (4)
  1. KEPPRA [Concomitant]
     Dosage: UNK
     Route: 048
     Dates: start: 20050315
  2. NAPROXEN [Suspect]
     Indication: RHEUMATOID ARTHRITIS
     Route: 048
     Dates: start: 20060315
  3. DEPO-MEDROL [Suspect]
     Indication: RHEUMATOID ARTHRITIS
     Dosage: UNK
     Route: 030
     Dates: start: 20060908
  4. PLAQUENIL [Suspect]
     Indication: RHEUMATOID ARTHRITIS
     Route: 048
     Dates: start: 20060615

REACTIONS (2)
  - CHEST PAIN [None]
  - DYSPNOEA EXERTIONAL [None]
